FAERS Safety Report 5389861-X (Version None)
Quarter: 2007Q3

REPORT INFORMATION
  Report Type: 
  Country: None (occurrence: None)
  Receive Date: 20070718
  Receipt Date: 20070712
  Transmission Date: 20080115
  Serious: Yes (Hospitalization, Other)
  Sender: FDA-Public Use
  Company Number: PHNU2007DE02512

PATIENT
  Sex: Female

DRUGS (2)
  1. TORSEMIDE [Concomitant]
  2. DIOVAN HCT [Suspect]
     Indication: HYPERTENSION
     Dates: end: 20070101

REACTIONS (2)
  - HYPONATRAEMIA [None]
  - TRAUMATIC BRAIN INJURY [None]
